FAERS Safety Report 7295850-0 (Version None)
Quarter: 2011Q1

REPORT INFORMATION
  Report Type: 
  Country: None (occurrence: None)
  Receive Date: 20110216
  Receipt Date: 20110107
  Transmission Date: 20110831
  Serious: No
  Sender: FDA-Public Use
  Company Number: US-ABBOTT-11P-163-0696279-00

PATIENT
  Sex: Female
  Weight: 54.026 kg

DRUGS (9)
  1. BENICAR [Concomitant]
     Indication: HYPERTENSION
  2. LORAZEPAM [Concomitant]
     Indication: INSOMNIA
  3. SIMCOR [Suspect]
     Indication: LOW DENSITY LIPOPROTEIN INCREASED
     Dosage: 1000/20 MG
     Dates: start: 20101001, end: 20101201
  4. SIMCOR [Suspect]
  5. COREG CR [Concomitant]
     Indication: TACHYCARDIA
  6. ASPIRIN [Concomitant]
     Indication: CARDIAC DISORDER
  7. PROTONIX [Concomitant]
     Indication: GASTROOESOPHAGEAL REFLUX DISEASE
  8. SIMCOR [Suspect]
     Indication: LOW DENSITY LIPOPROTEIN INCREASED
     Dosage: 1000/40 MG
     Dates: start: 20101201
  9. UNKNOWN VITAMINS [Concomitant]
     Indication: VITAMIN SUPPLEMENTATION

REACTIONS (1)
  - VISION BLURRED [None]
